FAERS Safety Report 9518608 (Version 1)
Quarter: 2013Q1

REPORT INFORMATION
  Report Type: Spontaneous
  Country: US (occurrence: None)
  Receive Date: 20130305
  Receipt Date: 20130305
  Transmission Date: 20140127
  Serious: Yes (Other)
  Sender: FDA-Public Use
  Company Number: 163-21880-11123609

PATIENT
  Age: 50 Year
  Sex: Male

DRUGS (6)
  1. REVLIMID (LENALIDOMIDE) (25 MILLIGRAM, CAPSULES) [Suspect]
     Indication: PLASMA CELL MYELOMA
     Dosage: 25 MG, DAILY, PO
     Route: 048
     Dates: start: 20111111, end: 201111
  2. LISINOPRIL (LISINOPRIL) (UNKNOWN) [Concomitant]
  3. METFORMIN (METFORMIN) (UNKNOWN) [Concomitant]
  4. SIMVASTATIN [Concomitant]
  5. PREDNISONE (PREDISONE) (UNKNOWN) [Concomitant]
  6. PERCOCET (OXYCOCET) (UNKNOWN) [Concomitant]

REACTIONS (1)
  - Hypersensitivity [None]
